FAERS Safety Report 9676388 (Version 1)
Quarter: 2013Q4

REPORT INFORMATION
  Report Type: Spontaneous
  Country: US (occurrence: US)
  Receive Date: 20131107
  Receipt Date: 20131107
  Transmission Date: 20140711
  Serious: Yes (Hospitalization, Other)
  Sender: FDA-Public Use
  Company Number: US-ASTRAZENECA-2013SE80944

PATIENT
  Age: 63 Year
  Sex: Male
  Weight: 113.4 kg

DRUGS (7)
  1. SYMBICORT [Suspect]
     Indication: CHRONIC OBSTRUCTIVE PULMONARY DISEASE
     Dosage: 160/4.5 MCG, 2 PUFFS BID
     Route: 055
     Dates: start: 201309
  2. SYMBICORT [Suspect]
     Indication: ASTHMA
     Dosage: 160/4.5 MCG, 2 PUFFS BID
     Route: 055
     Dates: start: 201309
  3. LISINOPRIL [Suspect]
     Indication: HYPERTENSION
     Dosage: UNKNOWN NR
     Route: 048
  4. OMEPRAZOLE [Suspect]
     Indication: DYSPEPSIA
     Dosage: UNKNOWN NR
     Route: 048
  5. PRAVASTATIN [Concomitant]
     Indication: LOW DENSITY LIPOPROTEIN INCREASED
  6. CHLORTHALMIDE [Concomitant]
     Indication: DIURETIC THERAPY
     Dosage: UNKNOWN NR
  7. ZYRTEC [Concomitant]
     Indication: HYPERSENSITIVITY
     Dosage: UNKNOWN NR

REACTIONS (3)
  - Spinal deformity [Unknown]
  - Muscle spasms [Unknown]
  - Gait disturbance [Unknown]
